FAERS Safety Report 7769152-X (Version None)
Quarter: 2011Q3

REPORT INFORMATION
  Report Type: 
  Country: None (occurrence: None)
  Receive Date: 20110922
  Receipt Date: 20110318
  Transmission Date: 20111222
  Serious: No
  Sender: FDA-Public Use
  Company Number: US-ASTRAZENECA-2011SE15478

PATIENT
  Age: 50 Year
  Sex: Female
  Weight: 95.3 kg

DRUGS (2)
  1. SEROQUEL [Suspect]
     Indication: BIPOLAR DISORDER
     Route: 048
     Dates: start: 20100101
  2. DEPAKOTE [Concomitant]
     Indication: BIPOLAR DISORDER

REACTIONS (1)
  - NASOPHARYNGITIS [None]
